FAERS Safety Report 7367255-5 (Version None)
Quarter: 2011Q1

REPORT INFORMATION
  Report Type: 
  Country: None (occurrence: None)
  Receive Date: 20110322
  Receipt Date: 20110310
  Transmission Date: 20110831
  Serious: Yes (Other)
  Sender: FDA-Public Use
  Company Number: JP-JNJFOC-20110305051

PATIENT
  Sex: Female
  Weight: 75 kg

DRUGS (2)
  1. PARACETAMOL [Suspect]
     Indication: PRODUCT USED FOR UNKNOWN INDICATION
  2. PARACETAMOL [Suspect]

REACTIONS (1)
  - RHABDOMYOLYSIS [None]
